FAERS Safety Report 8536851-1 (Version None)
Quarter: 2012Q3

REPORT INFORMATION
  Report Type: 
  Country: None (occurrence: None)
  Receive Date: 20120725
  Receipt Date: 20120716
  Transmission Date: 20120928
  Serious: Yes (Other)
  Sender: FDA-Public Use
  Company Number: SE-ASTRAZENECA-2012SE43192

PATIENT
  Sex: Female
  Weight: 65 kg

DRUGS (4)
  1. ATACAND [Suspect]
     Route: 048
     Dates: start: 20110301, end: 20120701
  2. LEVOTHYROXINE SODIUM [Concomitant]
     Indication: HYPOTHYROIDISM
     Dates: start: 20020101
  3. LEVOTHYROXINE SODIUM [Concomitant]
     Dates: start: 20020101
  4. ATACAND [Suspect]
     Indication: HYPERTENSION
     Route: 048
     Dates: start: 20100101

REACTIONS (8)
  - GINGIVAL HYPERTROPHY [None]
  - LACRIMATION INCREASED [None]
  - MUSCLE SPASMS [None]
  - CHRONIC MYELOID LEUKAEMIA [None]
  - PRODUCTIVE COUGH [None]
  - GINGIVAL BLEEDING [None]
  - GINGIVAL PAIN [None]
  - FATIGUE [None]
